FAERS Safety Report 7213888-6 (Version None)
Quarter: 2011Q1

REPORT INFORMATION
  Report Type: 
  Country: None (occurrence: None)
  Receive Date: 20110106
  Receipt Date: 20101228
  Transmission Date: 20110831
  Serious: Yes (Other)
  Sender: FDA-Public Use
  Company Number: US-ABBOTT-10P-163-0694296-00

PATIENT
  Age: 68 Year
  Sex: Female

DRUGS (11)
  1. FOLIC ACID [Concomitant]
     Indication: VITAMIN SUPPLEMENTATION
  2. METHOTREXATE [Concomitant]
     Indication: PRODUCT USED FOR UNKNOWN INDICATION
  3. DIOVAN [Concomitant]
     Indication: HYPERTENSION
  4. CELEBREX [Concomitant]
     Indication: RHEUMATOID ARTHRITIS
  5. HUMIRA [Suspect]
     Indication: RHEUMATOID ARTHRITIS
     Dates: start: 20050101
  6. LOVASTATIN [Concomitant]
     Indication: BLOOD CHOLESTEROL INCREASED
  7. LEVOTHYROXINE [Concomitant]
     Indication: HYPOTHYROIDISM
  8. CARDIZEM LA [Concomitant]
     Indication: HYPERTENSION
  9. Q-BAR INHALER [Concomitant]
     Indication: ASTHMA
     Route: 055
  10. LANOXIN [Concomitant]
     Indication: ARRHYTHMIA
  11. SINGULAIR [Concomitant]
     Indication: ASTHMA

REACTIONS (5)
  - ATRIAL FIBRILLATION [None]
  - PAIN IN EXTREMITY [None]
  - FOOT DEFORMITY [None]
  - UPPER RESPIRATORY TRACT INFECTION [None]
  - SINUSITIS [None]
